FAERS Safety Report 9729532 (Version 2)
Quarter: 2014Q1

REPORT INFORMATION
  Report Type: Spontaneous
  Country: US (occurrence: US)
  Receive Date: 20131204
  Receipt Date: 20140203
  Transmission Date: 20141002
  Serious: Yes (Hospitalization)
  Sender: FDA-Public Use
  Company Number: US-INCYTE CORPORATION-2013IN002844

PATIENT
  Age: 74 Year
  Sex: Male

DRUGS (5)
  1. JAKAFI [Suspect]
     Indication: POLYCYTHAEMIA VERA
     Dosage: 15 MG, BID
     Route: 048
     Dates: start: 20131003
  2. JAKAFI [Suspect]
     Indication: MYELOFIBROSIS
     Dosage: 15 MG, QD
     Route: 048
     Dates: start: 20140113
  3. ALLOPURINOL [Concomitant]
  4. METOPROLOL [Concomitant]
  5. CARVEDILOL [Concomitant]

REACTIONS (5)
  - Blood disorder [Unknown]
  - Cardiac disorder [Unknown]
  - Blood potassium increased [Unknown]
  - Diarrhoea [Unknown]
  - Blood count abnormal [Unknown]
